FAERS Safety Report 9669702 (Version 2)
Quarter: 2013Q4

REPORT INFORMATION
  Report Type: Report from Study
  Country: FR (occurrence: FR)
  Receive Date: 20131105
  Receipt Date: 20131105
  Transmission Date: 20140711
  Serious: Yes (Hospitalization)
  Sender: FDA-Public Use
  Company Number: FR-MERCK-1208FRA010017

PATIENT
  Age: 52 Year
  Sex: Male
  Weight: 46 kg

DRUGS (8)
  1. BOCEPREVIR [Suspect]
     Indication: HEPATITIS C
     Dosage: 2400 MG, TID
     Dates: start: 20120417
  2. VIRAFERONPEG [Suspect]
     Indication: HEPATITIS C
     Dosage: 80 MICROGRAM, QW
     Dates: start: 20120323
  3. REBETOL [Suspect]
     Indication: HEPATITIS C
     Dosage: 800 MG, BID
     Dates: start: 20120323
  4. TAREG [Concomitant]
     Indication: HYPERTENSION
     Dosage: 80 MG, QD
     Dates: start: 20111004
  5. BISOPROLOL [Concomitant]
     Indication: HYPERTENSION
     Dosage: 5 MG, QD
     Dates: start: 20081202
  6. KIVEXA [Concomitant]
     Indication: HIV INFECTION
     Dosage: 1 DF, QD
     Dates: start: 20100801
  7. REYATAZ [Concomitant]
     Indication: HIV INFECTION
     Dosage: 300 MG, QD
     Dates: start: 20100801
  8. NORVIR [Concomitant]
     Indication: HIV INFECTION
     Dosage: 100 MG, QD
     Dates: start: 20100801

REACTIONS (1)
  - Presyncope [Recovered/Resolved]
